FAERS Safety Report 18041778 (Version 1)
Quarter: 2020Q3

REPORT INFORMATION
  Report Type: Spontaneous
  Country: NL (occurrence: NL)
  Receive Date: 20200720
  Receipt Date: 20200720
  Transmission Date: 20201103
  Serious: Yes (Other)
  Sender: FDA-Public Use
  Company Number: NL-TEVA-2020-NL-1800973

PATIENT
  Age: 82 Year
  Sex: Female
  Weight: 80 kg

DRUGS (5)
  1. FENPROCOUMON [Concomitant]
     Active Substance: PHENPROCOUMON
     Dosage: 3 MG,THERAPY END DATE : ASKU
     Dates: start: 20190624
  2. SPIRONOLACTON [Suspect]
     Active Substance: SPIRONOLACTONE
     Indication: CARDIAC FAILURE
     Dosage: 12 MILLIGRAM DAILY;
     Dates: start: 202006, end: 20200612
  3. LOSEC MUPS 40MG [Concomitant]
     Dosage: 1DD1, 40 MG,THERAPY END DATE : ASKU
     Dates: start: 20181018
  4. PSYLLIUM VEZEL 3,6 G [Concomitant]
     Dosage: THERAPY END DATE : ASKU
     Dates: start: 20200602
  5. AMITRIPTYLINE 10MG [Concomitant]
     Active Substance: AMITRIPTYLINE
     Dosage: 1DD1, 10 MG,THERAPY END DATE : ASKU
     Dates: start: 20180622

REACTIONS (2)
  - Swollen tongue [Recovered/Resolved]
  - Lip swelling [Recovered/Resolved]

NARRATIVE: CASE EVENT DATE: 20200612
